FAERS Safety Report 7630243-5 (Version None)
Quarter: 2011Q3

REPORT INFORMATION
  Report Type: 
  Country: None (occurrence: None)
  Receive Date: 20110722
  Receipt Date: 20110718
  Transmission Date: 20111222
  Serious: Yes (Hospitalization, Disabling, Other)
  Sender: FDA-Public Use
  Company Number: US-PFIZER INC-2008023134

PATIENT
  Sex: Male
  Weight: 136.1 kg

DRUGS (13)
  1. AMOXIL [Concomitant]
     Indication: BACTERIAL INFECTION
     Dosage: UNK
     Dates: start: 20030424, end: 20081101
  2. CHANTIX [Suspect]
     Indication: SMOKING CESSATION THERAPY
     Dosage: CONTINUING MONTH PACK
     Dates: start: 20070715, end: 20070917
  3. ADVAIR DISKUS 100/50 [Concomitant]
     Indication: CHRONIC OBSTRUCTIVE PULMONARY DISEASE
     Dosage: UNK
     Dates: start: 20040701
  4. HYDROCODONE [Concomitant]
     Indication: ANALGESIC THERAPY
     Dosage: UNK
     Dates: start: 20060622, end: 20081106
  5. PREVACID [Concomitant]
     Indication: GASTROOESOPHAGEAL REFLUX DISEASE
     Dosage: UNK
     Dates: start: 20050121
  6. AMOXICILLIN [Concomitant]
     Indication: SINUSITIS
     Dosage: UNK
     Dates: start: 20030424, end: 20081101
  7. PENICILLIN VK [Concomitant]
     Indication: BACTERIAL INFECTION
     Dosage: UNK
     Dates: start: 20060622, end: 20090209
  8. VERAPAMIL [Concomitant]
     Indication: HYPERTENSION
     Dosage: UNK
     Dates: start: 20041214
  9. ASPIRIN [Concomitant]
  10. BUSPAR [Concomitant]
     Indication: ANXIETY
     Dosage: 15 MG, 2X/DAY
     Dates: start: 20031203
  11. PROZAC [Concomitant]
     Indication: DEPRESSION
  12. LISINOPRIL [Concomitant]
     Indication: HYPERTENSION
     Dosage: UNK
     Dates: start: 20041214
  13. PROZAC [Concomitant]
     Indication: ANXIETY
     Dosage: UNK
     Dates: start: 19920101, end: 20080101

REACTIONS (29)
  - TRANSIENT ISCHAEMIC ATTACK [None]
  - GENERALISED ANXIETY DISORDER [None]
  - LETHARGY [None]
  - AGITATION [None]
  - STRESS [None]
  - CEREBROVASCULAR DISORDER [None]
  - FACIAL PAIN [None]
  - HEADACHE [None]
  - HYPERHIDROSIS [None]
  - IMPAIRED WORK ABILITY [None]
  - BIPOLAR I DISORDER [None]
  - CHEST PAIN [None]
  - SKIN DISORDER [None]
  - SUICIDAL IDEATION [None]
  - BLOOD PRESSURE INCREASED [None]
  - WEIGHT DECREASED [None]
  - PANIC ATTACK [None]
  - ABNORMAL BEHAVIOUR [None]
  - CAROTID ARTERY STENOSIS [None]
  - PAIN [None]
  - MUSCULOSKELETAL PAIN [None]
  - DISTURBANCE IN ATTENTION [None]
  - DRUG HYPERSENSITIVITY [None]
  - VISION BLURRED [None]
  - MENTAL IMPAIRMENT [None]
  - ACTIVITIES OF DAILY LIVING IMPAIRED [None]
  - MAJOR DEPRESSION [None]
  - MIGRAINE [None]
  - FATIGUE [None]
